FAERS Safety Report 22145362 (Version 1)
Quarter: 2023Q1

REPORT INFORMATION
  Report Type: Spontaneous
  Country: US (occurrence: US)
  Receive Date: 20230328
  Receipt Date: 20230328
  Transmission Date: 20230418
  Serious: Yes (Other)
  Sender: FDA-Public Use
  Company Number: US-TEVA-2023-US-2869414

PATIENT
  Age: 12 Year
  Sex: Male

DRUGS (1)
  1. SCOPOLAMINE [Suspect]
     Active Substance: SCOPOLAMINE
     Indication: Encephalitis
     Dosage: 1 MG/72HR
     Route: 065

REACTIONS (9)
  - Hallucination [Unknown]
  - Visual impairment [Unknown]
  - Overdose [Unknown]
  - Pupillary reflex impaired [Unknown]
  - Feeling abnormal [Not Recovered/Not Resolved]
  - Blepharospasm [Not Recovered/Not Resolved]
  - Gait disturbance [Unknown]
  - Product use issue [Unknown]
  - Device use issue [Unknown]

NARRATIVE: CASE EVENT DATE: 20210101
